FAERS Safety Report 21892106 (Version 1)
Quarter: 2023Q1

REPORT INFORMATION
  Report Type: Spontaneous
  Country: US (occurrence: US)
  Receive Date: 20230120
  Receipt Date: 20230120
  Transmission Date: 20230418
  Serious: Yes (Death, Other)
  Sender: FDA-Public Use
  Company Number: US-DSPHARMA-2023SUN000094

PATIENT
  Age: 45 Year
  Sex: Female

DRUGS (5)
  1. LURASIDONE HYDROCHLORIDE [Suspect]
     Active Substance: LURASIDONE HYDROCHLORIDE
     Dosage: UNK
     Route: 048
  2. CLONAZEPAM [Suspect]
     Active Substance: CLONAZEPAM
     Dosage: UNKNOWN
     Route: 048
  3. METOPROLOL [Suspect]
     Active Substance: METOPROLOL
     Dosage: UNKNOWN
     Route: 048
  4. CYCLOBENZAPRINE [Suspect]
     Active Substance: CYCLOBENZAPRINE
     Dosage: UNK
     Route: 048
  5. BUPROPION [Suspect]
     Active Substance: BUPROPION
     Dosage: UNKNOWN
     Route: 048

REACTIONS (1)
  - Completed suicide [Fatal]
